FAERS Safety Report 6981347-1 (Version None)
Quarter: 2010Q3

REPORT INFORMATION
  Report Type: 
  Country: None (occurrence: None)
  Receive Date: 20100909
  Receipt Date: 20100831
  Transmission Date: 20110219
  Serious: Yes (Other)
  Sender: FDA-Public Use
  Company Number: 2010090006

PATIENT
  Age: 62 Year
  Sex: Male

DRUGS (4)
  1. ONSOLIS [Suspect]
     Indication: CANCER PAIN
     Dosage: TITRATE UP TO 4 FILMS/DOSE (UP TO 4 TIMES DAILY), BU; (1200 MCG. UP TO 4 TIMES DAILY AS NEEDED), BU
     Route: 002
     Dates: start: 20100731, end: 20100805
  2. ONSOLIS [Suspect]
     Indication: CANCER PAIN
     Dosage: TITRATE UP TO 4 FILMS/DOSE (UP TO 4 TIMES DAILY), BU; (1200 MCG. UP TO 4 TIMES DAILY AS NEEDED), BU
     Route: 002
     Dates: start: 20100806, end: 20100827
  3. DURAGESIC-100 [Concomitant]
  4. OXYCODONE HCL [Concomitant]

REACTIONS (2)
  - MALIGNANT NEOPLASM PROGRESSION [None]
  - PANCREATIC CARCINOMA [None]
